FAERS Safety Report 7420410-8 (Version None)
Quarter: 2011Q2

REPORT INFORMATION
  Report Type: 
  Country: None (occurrence: None)
  Receive Date: 20110418
  Receipt Date: 20110415
  Transmission Date: 20111010
  Serious: Yes (Other)
  Sender: FDA-Public Use
  Company Number: US-PFIZER INC-2011083521

PATIENT
  Age: 84 Year
  Sex: Female

DRUGS (1)
  1. ZOLOFT [Suspect]
     Dosage: UNK

REACTIONS (3)
  - NEOPLASM MALIGNANT [None]
  - FEELING ABNORMAL [None]
  - HALLUCINATION [None]
